FAERS Safety Report 4571198-X (Version None)
Quarter: 2005Q1

REPORT INFORMATION
  Report Type: 
  Country: None (occurrence: None)
  Receive Date: 20050202
  Receipt Date: 20050114
  Transmission Date: 20050727
  Serious: Yes (Other)
  Sender: FDA-Public Use
  Company Number: BRO-008293

PATIENT
  Age: 50 Year
  Sex: Male

DRUGS (2)
  1. IOPAMIRO-300 [Suspect]
     Indication: ANGIOGRAM
     Dosage: IA
     Route: 014
  2. IOPAMIRO-300 [Suspect]
     Indication: CAROTID ARTERY STENOSIS
     Dosage: IA
     Route: 014

REACTIONS (1)
  - CEREBRAL INFARCTION [None]
